FAERS Safety Report 6138380-1 (Version None)
Quarter: 2009Q1

REPORT INFORMATION
  Report Type: 
  Country: None (occurrence: None)
  Receive Date: 20090327
  Receipt Date: 20090316
  Transmission Date: 20090719
  Serious: Yes (Hospitalization, Other)
  Sender: FDA-Public Use
  Company Number: TAP2009Q00231

PATIENT
  Age: 7 Year
  Sex: Female
  Weight: 22.7 kg

DRUGS (4)
  1. PREVACID [Suspect]
     Indication: GASTROOESOPHAGEAL REFLUX DISEASE
     Dosage: 30 MG (30 MG, 1 IN 1 D), PER ORAL; 30 MG (30 MG, ONCE), PER ORAL
     Route: 048
     Dates: start: 20080501, end: 20090201
  2. PREVACID [Suspect]
     Indication: GASTROOESOPHAGEAL REFLUX DISEASE
     Dosage: 30 MG (30 MG, 1 IN 1 D), PER ORAL; 30 MG (30 MG, ONCE), PER ORAL
     Route: 048
     Dates: start: 20090315, end: 20090316
  3. KEPPRA [Suspect]
     Indication: CONVULSION
  4. LEVOCARNITINE (LEVOCARNITINE) [Concomitant]

REACTIONS (4)
  - CONVULSION [None]
  - CYANOSIS [None]
  - DRUG INTERACTION [None]
  - MUSCLE TWITCHING [None]
